FAERS Safety Report 12581410 (Version 2)
Quarter: 2016Q3

REPORT INFORMATION
  Report Type: Spontaneous
  Country: US (occurrence: US)
  Receive Date: 20160721
  Receipt Date: 20160908
  Transmission Date: 20161109
  Serious: Yes (Other)
  Sender: FDA-Public Use
  Company Number: US-RELYPSA-RLY2016001509

PATIENT
  Age: 63 Year
  Sex: Male

DRUGS (6)
  1. PROCARDIA [Concomitant]
     Active Substance: NIFEDIPINE
  2. RENAPLEX D [Concomitant]
  3. VELTASSA [Suspect]
     Active Substance: PATIROMER
     Indication: HYPERKALAEMIA
     Dosage: 8.4 G, QD
     Route: 048
     Dates: start: 20160611
  4. CALCIUM [Concomitant]
     Active Substance: CALCIUM
  5. CLONIDINE. [Concomitant]
     Active Substance: CLONIDINE
  6. TRAMADOL HCL [Concomitant]
     Active Substance: TRAMADOL HYDROCHLORIDE

REACTIONS (1)
  - Blood urine present [Recovered/Resolved]

NARRATIVE: CASE EVENT DATE: 20160611
